FAERS Safety Report 26142806 (Version 1)
Quarter: 2025Q4

REPORT INFORMATION
  Report Type: Spontaneous
  Country: CN (occurrence: CN)
  Receive Date: 20251211
  Receipt Date: 20251211
  Transmission Date: 20260118
  Serious: Yes (Other)
  Sender: MERCK SHARP & DOHME LLC
  Company Number: CN-009507513-2357457

PATIENT
  Age: 76 Year
  Sex: Male

DRUGS (7)
  1. CASPOFUNGIN [Suspect]
     Active Substance: CASPOFUNGIN
     Indication: Mycotic endophthalmitis
     Route: 042
  2. BRIMONIDINE TARTRATE [Concomitant]
     Active Substance: BRIMONIDINE TARTRATE
     Indication: Intraocular pressure increased
     Dosage: STRENGTH: 0.2%
  3. VORICONAZOLE [Suspect]
     Active Substance: VORICONAZOLE
     Indication: Mycotic endophthalmitis
     Dosage: SYSTEMIC
  4. VORICONAZOLE [Suspect]
     Active Substance: VORICONAZOLE
     Indication: Mycotic endophthalmitis
     Dosage: TIME INTERVAL: TOTAL: TWO IRRIGATIONS
     Route: 050
  5. VORICONAZOLE [Suspect]
     Active Substance: VORICONAZOLE
     Indication: Mycotic endophthalmitis
     Dosage: STRENGTH: 1%
     Route: 061
  6. VORICONAZOLE [Suspect]
     Active Substance: VORICONAZOLE
     Indication: Mycotic endophthalmitis
     Dosage: TIME INTERVAL: TOTAL: TWO IRRIGATIONS
     Route: 050
  7. NATAMYCIN [Suspect]
     Active Substance: NATAMYCIN
     Indication: Mycotic endophthalmitis
     Dosage: STRENGTH: 5%
     Route: 061

REACTIONS (1)
  - Drug ineffective [Unknown]
